FAERS Safety Report 20532938 (Version 5)
Quarter: 2023Q2

REPORT INFORMATION
  Report Type: Spontaneous
  Country: US (occurrence: US)
  Receive Date: 20220301
  Receipt Date: 20230525
  Transmission Date: 20230722
  Serious: Yes (Hospitalization, Disabling, Other)
  Sender: FDA-Public Use
  Company Number: US-ORGANON-O2202USA002336

PATIENT
  Sex: Female
  Weight: 95.692 kg

DRUGS (2)
  1. SINGULAIR [Suspect]
     Active Substance: MONTELUKAST SODIUM
     Indication: Asthma
     Dosage: DIRECTION: 1 EVERY DAY/TAKE ONE TABLET BY MOUTH EVERY DAY
     Route: 048
     Dates: start: 2000
  2. SINGULAIR [Suspect]
     Active Substance: MONTELUKAST SODIUM
     Dosage: TAKE 1 TAB (10 MG TOTAL) BY MOUTH EVERY EVENING.
     Route: 048
     Dates: start: 20201123, end: 20210728

REACTIONS (12)
  - Panic disorder [Not Recovered/Not Resolved]
  - Agoraphobia [Recovered/Resolved]
  - Bipolar I disorder [Not Recovered/Not Resolved]
  - Major depression [Recovered/Resolved]
  - Neuropsychiatric symptoms [Not Recovered/Not Resolved]
  - Suicide attempt [Recovered/Resolved]
  - Generalised anxiety disorder [Recovered/Resolved]
  - Tremor [Recovered/Resolved]
  - Suicidal ideation [Recovered/Resolved]
  - Uterine dilation and curettage [Unknown]
  - Abnormal behaviour [Not Recovered/Not Resolved]
  - Mood swings [Not Recovered/Not Resolved]

NARRATIVE: CASE EVENT DATE: 20000101
